FAERS Safety Report 20122667 (Version 5)
Quarter: 2021Q4

REPORT INFORMATION
  Report Type: Report from Study
  Country: US (occurrence: US)
  Receive Date: 20211128
  Receipt Date: 20211213
  Transmission Date: 20220303
  Serious: Yes (Other)
  Sender: FDA-Public Use
  Company Number: US-ABBVIE-21K-163-4176175-00

PATIENT
  Sex: Male
  Weight: 48.578 kg

DRUGS (5)
  1. MAVYRET [Suspect]
     Active Substance: GLECAPREVIR\PIBRENTASVIR
     Indication: Hepatitis C
     Dosage: 100 MG/40 MG?3 DOSAGE FORMS
     Route: 048
     Dates: start: 20211101
  2. MAVYRET [Suspect]
     Active Substance: GLECAPREVIR\PIBRENTASVIR
     Indication: Hepatic cancer
  3. ASPIRIN [Concomitant]
     Active Substance: ASPIRIN
     Indication: Cardiac disorder
  4. LORAZEPAM [Concomitant]
     Active Substance: LORAZEPAM
     Indication: Prophylaxis
  5. SYMBICORT [Concomitant]
     Active Substance: BUDESONIDE\FORMOTEROL FUMARATE DIHYDRATE
     Indication: Emphysema

REACTIONS (7)
  - Hepatitis C [Unknown]
  - Product packaging difficult to open [Unknown]
  - Pain in extremity [Recovered/Resolved]
  - Off label use [Unknown]
  - Abdominal distension [Unknown]
  - Hypoacusis [Unknown]
  - Nausea [Unknown]

NARRATIVE: CASE EVENT DATE: 20210101
